FAERS Safety Report 8844086 (Version 2)
Quarter: 2012Q4

REPORT INFORMATION
  Report Type: 
  Country: JP (occurrence: JP)
  Receive Date: 20121016
  Receipt Date: 20121031
  Transmission Date: 20130627
  Serious: Yes (Hospitalization, Other)
  Sender: FDA-Public Use
  Company Number: JP-JNJFOC-20121007648

PATIENT
  Age: 85 Year
  Sex: Female
  Weight: 36 kg

DRUGS (1)
  1. TRAMCET [Suspect]
     Indication: PRODUCT USED FOR UNKNOWN INDICATION
     Dosage: 1 per 1 day
     Route: 048

REACTIONS (3)
  - Metabolic encephalopathy [Recovering/Resolving]
  - Loss of consciousness [Recovered/Resolved]
  - Electroencephalogram abnormal [Unknown]
